FAERS Safety Report 7844313-X (Version None)
Quarter: 2011Q4

REPORT INFORMATION
  Report Type: 
  Country: None (occurrence: None)
  Receive Date: 20111025
  Receipt Date: 20111017
  Transmission Date: 20120403
  Serious: Yes (Other)
  Sender: FDA-Public Use
  Company Number: FR-B.I. PHARMACEUTICALS,INC./RIDGEFIELD-2011-DE-05892GD

PATIENT
  Age: 59 Year
  Sex: Female

DRUGS (2)
  1. PANTOPRAZOLE [Suspect]
  2. TEMISARTAN [Suspect]

REACTIONS (7)
  - HYPERHIDROSIS [None]
  - HEADACHE [None]
  - TINNITUS [None]
  - HYPONATRAEMIA [None]
  - INAPPROPRIATE ANTIDIURETIC HORMONE SECRETION [None]
  - HYPOTENSION [None]
  - MALAISE [None]
